FAERS Safety Report 18922631 (Version 1)
Quarter: 2021Q1

REPORT INFORMATION
  Report Type: Spontaneous
  Country: US (occurrence: US)
  Receive Date: 20210222
  Receipt Date: 20210222
  Transmission Date: 20210420
  Serious: Yes (Life-Threatening, Hospitalization)
  Sender: FDA-Public Use
  Company Number: US-MYLANLABS-2021M1010495

PATIENT
  Age: 59 Year
  Sex: Female

DRUGS (15)
  1. OCTREOTIDE. [Suspect]
     Active Substance: OCTREOTIDE
     Indication: VASOCONSTRICTION
     Dosage: OCTREOTIDE DEPOT INJECTION...
     Route: 065
  2. OCTREOTIDE. [Suspect]
     Active Substance: OCTREOTIDE
     Dosage: 150 MICROGRAM, TID....
     Route: 058
  3. MITOMYCIN. [Concomitant]
     Active Substance: MITOMYCIN
     Indication: METASTASES TO LIVER
     Dosage: EMULSION
     Route: 065
  4. OCTREOTIDE. [Suspect]
     Active Substance: OCTREOTIDE
     Dosage: 150 MICROGRAM, QH...
     Route: 065
  5. OCTREOTIDE. [Suspect]
     Active Substance: OCTREOTIDE
     Dosage: 500 MICROGRAM, QH....
     Route: 065
  6. OCTREOTIDE. [Suspect]
     Active Substance: OCTREOTIDE
     Indication: CARCINOID CRISIS
     Dosage: 150 MICROGRAM, QH...
     Route: 065
  7. VASOPRESSIN. [Suspect]
     Active Substance: VASOPRESSIN
     Indication: CARDIOGENIC SHOCK
     Dosage: INFUSION
     Route: 065
  8. MILRINONE [Suspect]
     Active Substance: MILRINONE
     Indication: CARDIOGENIC SHOCK
     Route: 065
  9. DOXORUBICIN [Concomitant]
     Active Substance: DOXORUBICIN
     Indication: METASTASES TO LIVER
     Dosage: EMULSION
     Route: 065
  10. OCTREOTIDE. [Suspect]
     Active Substance: OCTREOTIDE
     Indication: PROPHYLAXIS
     Dosage: 60 MILLIGRAM, MONTHLY
     Route: 065
  11. OCTREOTIDE. [Suspect]
     Active Substance: OCTREOTIDE
     Dosage: 50 MICROGRAM, QH, INFUSION
     Route: 065
  12. OCTREOTIDE. [Suspect]
     Active Substance: OCTREOTIDE
     Dosage: 500 MICROGRAM, INTERMITTENT....
  13. OCTREOTIDE. [Suspect]
     Active Substance: OCTREOTIDE
     Dosage: 300 MICROGRAM, QH
     Route: 065
  14. SODIUM NITROPRUSSIDE. [Suspect]
     Active Substance: SODIUM NITROPRUSSIDE
     Indication: CARDIOGENIC SHOCK
     Dosage: UNK
     Route: 065
  15. DOBUTAMINE [Suspect]
     Active Substance: DOBUTAMINE HYDROCHLORIDE
     Indication: CARDIOGENIC SHOCK
     Dosage: INFUSION
     Route: 065

REACTIONS (8)
  - Renal failure [Recovered/Resolved]
  - Condition aggravated [Recovered/Resolved]
  - Acute left ventricular failure [Recovered/Resolved]
  - Cardiogenic shock [Recovered/Resolved]
  - Hepatic necrosis [Recovered/Resolved]
  - Respiratory failure [Recovered/Resolved]
  - Myopathy [Recovered/Resolved]
  - Drug ineffective [Unknown]
